FAERS Safety Report 10018472 (Version 1)
Quarter: 2014Q1

REPORT INFORMATION
  Report Type: Spontaneous
  Country: US (occurrence: US)
  Receive Date: 20140318
  Receipt Date: 20140318
  Transmission Date: 20141002
  Serious: Yes (Hospitalization, Other)
  Sender: FDA-Public Use
  Company Number: US-B.I. PHARMACEUTICALS,INC./RIDGEFIELD-2014-BI-10831BP

PATIENT
  Age: 58 Year
  Sex: Female
  Weight: 72 kg

DRUGS (9)
  1. SPIRIVA [Suspect]
     Indication: INTERSTITIAL LUNG DISEASE
     Dosage: 18 MCG
     Route: 055
     Dates: start: 201307
  2. SPIRIVA [Suspect]
     Indication: CHRONIC OBSTRUCTIVE PULMONARY DISEASE
  3. TRUVADA [Concomitant]
     Indication: HIV INFECTION
     Dosage: 1 ANZ
     Route: 048
  4. REYATAZ [Concomitant]
     Indication: HIV INFECTION
     Dosage: 300 MG
     Route: 048
  5. NORVIR [Concomitant]
     Indication: HIV INFECTION
     Dosage: 100 MG
     Route: 048
  6. BACTRUM DS [Concomitant]
     Indication: HIV INFECTION
     Dosage: DOSE PER APPLICATION: 800MG/160 MG; DAILY DOSE: 800MG/160MG
     Route: 048
  7. FAMOTIDINE [Concomitant]
     Indication: GASTROOESOPHAGEAL REFLUX DISEASE
     Dosage: 20 MG
     Route: 048
  8. PERFORMIST [Concomitant]
     Indication: CHRONIC OBSTRUCTIVE PULMONARY DISEASE
     Route: 065
  9. PULMOCORT [Concomitant]
     Indication: CHRONIC OBSTRUCTIVE PULMONARY DISEASE
     Route: 065

REACTIONS (4)
  - Pneumonia [Recovered/Resolved]
  - Off label use [Unknown]
  - Pulmonary function test decreased [Not Recovered/Not Resolved]
  - Total lung capacity increased [Not Recovered/Not Resolved]
